FAERS Safety Report 24196447 (Version 3)
Quarter: 2024Q3

REPORT INFORMATION
  Report Type: Report from Study
  Country: CA (occurrence: CA)
  Receive Date: 20240810
  Receipt Date: 20240913
  Transmission Date: 20241017
  Serious: No
  Sender: ABBVIE
  Company Number: CA-ABBVIE-5873170

PATIENT
  Sex: Female

DRUGS (1)
  1. BOTOX [Suspect]
     Active Substance: ONABOTULINUMTOXINA
     Indication: Migraine
     Dosage: TIME INTERVAL: AS NECESSARY: FREQUENCY: EVERY THREE MONTHS
     Route: 058
     Dates: start: 202309, end: 202309

REACTIONS (1)
  - Headache [Unknown]
